FAERS Safety Report 22173308 (Version 1)
Quarter: 2023Q2

REPORT INFORMATION
  Report Type: Spontaneous
  Country: US (occurrence: US)
  Receive Date: 20230404
  Receipt Date: 20230404
  Transmission Date: 20230722
  Serious: Yes (Death, Life-Threatening, Other)
  Sender: FDA-Public Use
  Company Number: US-AMGEN-USASP2023053927

PATIENT

DRUGS (3)
  1. CARFILZOMIB [Suspect]
     Active Substance: CARFILZOMIB
     Indication: Plasma cell disorder
     Dosage: UNK
     Route: 065
  2. CARFILZOMIB [Suspect]
     Active Substance: CARFILZOMIB
     Indication: Off label use
  3. INFLIXIMAB [Suspect]
     Active Substance: INFLIXIMAB
     Indication: Product used for unknown indication
     Dosage: UNK
     Route: 065

REACTIONS (15)
  - Death [Fatal]
  - Acute graft versus host disease [Unknown]
  - Graft versus host disease [Fatal]
  - Haematological malignancy [Fatal]
  - Nocardiosis [Fatal]
  - Chronic graft versus host disease [Unknown]
  - Graft versus host disease in skin [Unknown]
  - Graft versus host disease in liver [Unknown]
  - Graft versus host disease in gastrointestinal tract [Unknown]
  - Pulmonary nocardiosis [Unknown]
  - Cutaneous nocardiosis [Unknown]
  - Cerebral nocardiosis [Unknown]
  - Cytomegalovirus infection [Unknown]
  - Systemic mycosis [Unknown]
  - Lymphopenia [Unknown]
